FAERS Safety Report 13109152 (Version 2)
Quarter: 2017Q1

REPORT INFORMATION
  Report Type: Spontaneous
  Country: US (occurrence: US)
  Receive Date: 20170112
  Receipt Date: 20170131
  Transmission Date: 20170428
  Serious: Yes (Death)
  Sender: FDA-Public Use
  Company Number: US-EAGLE PHARMACEUTICALS, INC.-US-2017EAG000001

PATIENT

DRUGS (1)
  1. DOCETAXEL INJECTION NON-ALCOHOL FORMULA [Suspect]
     Active Substance: DOCETAXEL
     Indication: CERVIX CANCER METASTATIC
     Dosage: UNKNOWN DOSAGE

REACTIONS (1)
  - Disease progression [Fatal]
